FAERS Safety Report 7622764-6 (Version None)
Quarter: 2011Q3

REPORT INFORMATION
  Report Type: 
  Country: None (occurrence: None)
  Receive Date: 20110712
  Receipt Date: 20110627
  Transmission Date: 20111222
  Serious: Yes (Hospitalization, Disabling)
  Sender: FDA-Public Use
  Company Number: JP-2011-10020

PATIENT
  Age: 61 Year
  Sex: Male
  Weight: 59 kg

DRUGS (16)
  1. LONGES (LISINOPRIL) TABLET [Concomitant]
  2. TAZOBACTAM:PIPERACILLIN (TAZOBACTAM:PIPERACILLIN) INJECTION [Concomitant]
  3. BAYASPIRIN (ACETYLSALICYLICA ACID) TABLET [Concomitant]
  4. TANADOPA (DOCARPAMINE) GRANULES [Concomitant]
  5. TICLOPIDINE HCL [Concomitant]
  6. LASIX [Concomitant]
  7. OMEPRAL (OMEPRAZOLE) TABLET [Concomitant]
  8. ALDACTONE [Concomitant]
  9. FORSENID (SENNOSIDE) [Concomitant]
  10. LIPOVAS (SIMVASTATIN) TABLET [Concomitant]
  11. GRACEVIT (SITAFLOXACIN HYDRATE) TABLET [Concomitant]
  12. SAMSCA [Suspect]
     Indication: CARDIAC FAILURE
     Dosage: 7.5 MG MILLIGRAM(S), QD, ORAL 15 MG MILLIGRAM(S), QD, ORAL
     Route: 048
     Dates: start: 20110105, end: 20110105
  13. SAMSCA [Suspect]
     Indication: CARDIAC FAILURE
     Dosage: 7.5 MG MILLIGRAM(S), QD, ORAL 15 MG MILLIGRAM(S), QD, ORAL
     Route: 048
     Dates: start: 20110106, end: 20110111
  14. MILLIS (GLYCERYL TRINITRATE) TRANSDERMAL PATCH [Concomitant]
  15. MOXIFLOXACIN HCL [Concomitant]
  16. PIMOBENDAN (PIMOBENDAN) TABLET [Concomitant]

REACTIONS (6)
  - HYPERNATRAEMIA [None]
  - ALTERED STATE OF CONSCIOUSNESS [None]
  - PYREXIA [None]
  - CATHETER SITE PAIN [None]
  - DELIRIUM [None]
  - BLOOD GLUCOSE INCREASED [None]
